FAERS Safety Report 12127187 (Version 1)
Quarter: 2016Q1

REPORT INFORMATION
  Report Type: Report from Study
  Country: BR (occurrence: BR)
  Receive Date: 20160229
  Receipt Date: 20160229
  Transmission Date: 20160526
  Serious: Yes (Other)
  Sender: FDA-Public Use
  Company Number: PHHY2016BR026228

PATIENT
  Sex: Female
  Weight: 80 kg

DRUGS (1)
  1. EXELON PATCH [Suspect]
     Active Substance: RIVASTIGMINE
     Indication: DEMENTIA ALZHEIMER^S TYPE
     Dosage: UNK, QD
     Route: 062

REACTIONS (8)
  - Application site hypersensitivity [Unknown]
  - Application site swelling [Unknown]
  - Application site irritation [Unknown]
  - Fall [Unknown]
  - Abasia [Unknown]
  - Weight decreased [Unknown]
  - Femur fracture [Unknown]
  - Application site erythema [Unknown]
